FAERS Safety Report 10374160 (Version 1)
Quarter: 2014Q3

REPORT INFORMATION
  Report Type: Spontaneous
  Country: NO (occurrence: NO)
  Receive Date: 20140811
  Receipt Date: 20140811
  Transmission Date: 20150326
  Serious: Yes (Death)
  Sender: FDA-Public Use
  Company Number: NO-ROCHE-1446670

PATIENT
  Age: 9 Decade
  Sex: Female

DRUGS (5)
  1. ACTILYSE [Suspect]
     Active Substance: ALTEPLASE
     Indication: CEREBRAL INFARCTION
     Route: 042
     Dates: start: 20140724, end: 20140724
  2. EZETROL [Concomitant]
     Active Substance: EZETIMIBE
     Route: 048
  3. ORUDIS [Concomitant]
     Active Substance: KETOPROFEN
     Route: 048
  4. PERSANTIN RETARD [Concomitant]
     Active Substance: DIPYRIDAMOLE
     Route: 048
  5. ALBYL-E [Concomitant]
     Active Substance: ASPIRIN\MAGNESIUM OXIDE
     Route: 048

REACTIONS (6)
  - Haemorrhage urinary tract [Fatal]
  - Respiratory arrest [Fatal]
  - Cardiac arrest [Fatal]
  - Apraxia [Fatal]
  - Cerebral haemorrhage [Fatal]
  - Pulmonary haemorrhage [Fatal]

NARRATIVE: CASE EVENT DATE: 20140724
